FAERS Safety Report 18710825 (Version 2)
Quarter: 2021Q1

REPORT INFORMATION
  Report Type: Spontaneous
  Country: US (occurrence: US)
  Receive Date: 20210107
  Receipt Date: 20210118
  Transmission Date: 20210419
  Serious: Yes (Other)
  Sender: FDA-Public Use
  Company Number: US-BAXTER-2020BAX027032

PATIENT
  Age: 56 Year
  Sex: Female

DRUGS (3)
  1. IFOSFAMIDE FOR INJECTION [Suspect]
     Active Substance: IFOSFAMIDE
     Indication: ENDOMETRIAL STROMAL SARCOMA
     Dosage: CYCLICAL
     Route: 065
     Dates: start: 201904, end: 2019
  2. DOXIL [Suspect]
     Active Substance: DOXORUBICIN HYDROCHLORIDE
     Indication: ENDOMETRIAL STROMAL SARCOMA
     Dosage: CYCLICAL
     Route: 065
     Dates: start: 201904, end: 2019
  3. MESNEX [Suspect]
     Active Substance: MESNA
     Indication: ENDOMETRIAL STROMAL SARCOMA
     Dosage: CYCLICAL
     Route: 065
     Dates: start: 201904, end: 2019

REACTIONS (1)
  - Encephalopathy [Unknown]
